FAERS Safety Report 7362340-6 (Version None)
Quarter: 2011Q1

REPORT INFORMATION
  Report Type: 
  Country: None (occurrence: None)
  Receive Date: 20110318
  Receipt Date: 20101117
  Transmission Date: 20110831
  Serious: No
  Sender: FDA-Public Use
  Company Number: US-BAYER-2010-005047

PATIENT
  Sex: Female

DRUGS (1)
  1. AVELOX [Suspect]
     Dosage: DAILY DOSE 400 MG
     Route: 048
     Dates: start: 20101115, end: 20101117

REACTIONS (4)
  - OEDEMA PERIPHERAL [None]
  - HYPERSENSITIVITY [None]
  - ERYTHEMA [None]
  - SWELLING FACE [None]
